FAERS Safety Report 25648914 (Version 3)
Quarter: 2025Q3

REPORT INFORMATION
  Report Type: Report from Study
  Country: US (occurrence: US)
  Receive Date: 20250806
  Receipt Date: 20250920
  Transmission Date: 20251020
  Serious: Yes (Other)
  Sender: ABBVIE
  Company Number: US-ABBVIE-6401484

PATIENT
  Age: 67 Year
  Sex: Female
  Weight: 98 kg

DRUGS (1)
  1. SKYRIZI [Suspect]
     Active Substance: RISANKIZUMAB-RZAA
     Indication: Psoriasis
     Route: 058
     Dates: start: 20231002

REACTIONS (6)
  - Wrist fracture [Unknown]
  - Hand fracture [Unknown]
  - Calcium deficiency [Unknown]
  - Malabsorption [Unknown]
  - Nausea [Unknown]
  - Fall [Unknown]

NARRATIVE: CASE EVENT DATE: 20250401
